FAERS Safety Report 13116779 (Version 1)
Quarter: 2017Q1

REPORT INFORMATION
  Report Type: Spontaneous
  Country: US (occurrence: US)
  Receive Date: 20170116
  Receipt Date: 20170116
  Transmission Date: 20170428
  Serious: No
  Sender: FDA-Public Use
  Company Number: US-BAYER-2017-003906

PATIENT
  Age: 46 Year
  Sex: Female
  Weight: 56 kg

DRUGS (1)
  1. ALEVE [Suspect]
     Active Substance: NAPROXEN SODIUM
     Indication: MIGRAINE
     Dosage: 1 DF, AS NEEDED AT ABOUT 15 DAYS PER MONTH
     Route: 048
     Dates: end: 201612

REACTIONS (6)
  - Lip swelling [Recovering/Resolving]
  - Cheilitis [Recovering/Resolving]
  - Lip pruritus [Recovering/Resolving]
  - Product use issue [None]
  - Inappropriate schedule of drug administration [None]
  - Dermatitis contact [Recovering/Resolving]

NARRATIVE: CASE EVENT DATE: 201610
